FAERS Safety Report 8920951 (Version 4)
Quarter: 2013Q3

REPORT INFORMATION
  Report Type: Report from Study
  Country: JP (occurrence: JP)
  Receive Date: 20121121
  Receipt Date: 20130918
  Transmission Date: 20140515
  Serious: Yes (Hospitalization, Other)
  Sender: FDA-Public Use
  Company Number: JP-VERTEX PHARMACEUTICAL INC.-AE-2012-004423

PATIENT
  Age: 53 Year
  Sex: Female

DRUGS (12)
  1. VX-950 (TELAPREVIR) [Suspect]
     Indication: CHRONIC HEPATITIS C
     Dosage: 1500 MG, QD
     Route: 048
     Dates: start: 20111221, end: 20120313
  2. RIBAVIRIN [Suspect]
     Indication: CHRONIC HEPATITIS C
     Dosage: 400 MG, QD
     Route: 048
     Dates: start: 20111221, end: 20120314
  3. PEGINTERFERON ALFA-2B [Suspect]
     Indication: CHRONIC HEPATITIS C
     Dosage: 1.3 ?G/KG, QW
     Route: 058
     Dates: start: 20111221, end: 20120307
  4. VOLTAREN [Concomitant]
     Dosage: UNK UNK, PRN
     Route: 054
     Dates: start: 20111221, end: 20120203
  5. PRIMPERAN [Concomitant]
     Dosage: 5 MG, QD
     Route: 048
     Dates: start: 20111222
  6. RINDERON-VG [Concomitant]
     Dosage: UNK, PRN
     Route: 061
     Dates: end: 20120314
  7. MEILAX [Concomitant]
     Dosage: 1 MG, QD
     Route: 048
     Dates: end: 20120314
  8. JZOLOFT [Concomitant]
     Dosage: 50 MG, QD
     Route: 048
  9. MAGLAX [Concomitant]
     Dosage: 1500 MG, QD
     Route: 048
  10. SELBEX [Concomitant]
     Dosage: 150 MG, QD
     Route: 048
  11. LOXONIN [Concomitant]
     Dosage: UNK, PRN
     Route: 048
  12. BENZALIN [Concomitant]
     Dosage: 2.5 MG, QD
     Route: 048

REACTIONS (3)
  - Pyrexia [Recovered/Resolved]
  - Disseminated intravascular coagulation [Recovered/Resolved]
  - Erythema multiforme [Recovered/Resolved]
